FAERS Safety Report 20122471 (Version 1)
Quarter: 2021Q4

REPORT INFORMATION
  Report Type: Spontaneous
  Country: US (occurrence: US)
  Receive Date: 20211128
  Receipt Date: 20211128
  Transmission Date: 20220303
  Serious: Yes (Other)
  Sender: FDA-Public Use
  Company Number: US-PURDUE-USA-2020-0194844

PATIENT

DRUGS (1)
  1. MORPHINE SULFATE [Suspect]
     Active Substance: MORPHINE SULFATE
     Indication: Pain
     Dosage: UNKNOWN
     Route: 065

REACTIONS (6)
  - Drug dependence [Unknown]
  - Drug abuse [Unknown]
  - Vomiting [Unknown]
  - Tremor [Unknown]
  - Illness [Unknown]
  - Drug withdrawal syndrome [Unknown]
